FAERS Safety Report 24448626 (Version 1)
Quarter: 2024Q4

REPORT INFORMATION
  Report Type: Spontaneous
  Country: PL (occurrence: PL)
  Receive Date: 20241017
  Receipt Date: 20241017
  Transmission Date: 20250114
  Serious: Yes (Life-Threatening, Disabling, Other)
  Sender: AUROBINDO
  Company Number: PL-URPL-DML-MLP.4401.1.713.2022

PATIENT
  Age: 12 Year
  Sex: Female
  Weight: 45.5 kg

DRUGS (1)
  1. ACETAMINOPHEN [Suspect]
     Active Substance: ACETAMINOPHEN
     Indication: Product used for unknown indication
     Dosage: 300 MILLIGRAM/KILOGRAM (DOSE: 30 X 500 MG)
     Route: 065

REACTIONS (10)
  - Suicide attempt [Recovering/Resolving]
  - Liver injury [Recovering/Resolving]
  - Nausea [Recovering/Resolving]
  - Balance disorder [Recovering/Resolving]
  - Transaminases increased [Recovering/Resolving]
  - Vomiting [Recovering/Resolving]
  - Headache [Recovering/Resolving]
  - Hypoglycaemia [Recovering/Resolving]
  - International normalised ratio increased [Recovering/Resolving]
  - Toxicity to various agents [Recovering/Resolving]

NARRATIVE: CASE EVENT DATE: 20220115
